FAERS Safety Report 18540474 (Version 1)
Quarter: 2020Q4

REPORT INFORMATION
  Report Type: Spontaneous
  Country: US (occurrence: US)
  Receive Date: 20201124
  Receipt Date: 20201124
  Transmission Date: 20210114
  Serious: No
  Sender: FDA-Public Use
  Company Number: US-PFIZER INC-2020459516

PATIENT
  Age: 61 Year
  Sex: Female
  Weight: 61.23 kg

DRUGS (4)
  1. PRISTIQ EXTENDED-RELEASE [Suspect]
     Active Substance: DESVENLAFAXINE SUCCINATE
     Dosage: UNK(SHE JUST STARTED TAKING TINY PIECES OF THE MEDICATION DOWN TO BITS OF POWDER)
     Dates: start: 2020, end: 2020
  2. PRISTIQ EXTENDED-RELEASE [Suspect]
     Active Substance: DESVENLAFAXINE SUCCINATE
     Dosage: 50 MG
     Dates: start: 202008, end: 2020
  3. PRISTIQ EXTENDED-RELEASE [Suspect]
     Active Substance: DESVENLAFAXINE SUCCINATE
     Indication: MAJOR DEPRESSION
     Dosage: 25 MG, ALTERNATE DAY(SHE HAD ALTERNATED DAYS TAKING THE MEDICATION FOR 3 DAYS)
     Dates: start: 202007, end: 2020
  4. PRISTIQ EXTENDED-RELEASE [Suspect]
     Active Substance: DESVENLAFAXINE SUCCINATE
     Dosage: 25 MG(SHE HAD NO ISSUES COMING DOWN FROM 50MG BACK TO 25MG)
     Dates: start: 2020, end: 2020

REACTIONS (13)
  - Intentional product misuse [Unknown]
  - Crying [Unknown]
  - Depressed mood [Unknown]
  - Constipation [Unknown]
  - Fall [Unknown]
  - Antidepressant discontinuation syndrome [Unknown]
  - Emotional distress [Unknown]
  - Mood swings [Recovering/Resolving]
  - Sensation of foreign body [Unknown]
  - Cerebral disorder [Recovering/Resolving]
  - Fear [Unknown]
  - Dizziness [Not Recovered/Not Resolved]
  - Nausea [Not Recovered/Not Resolved]

NARRATIVE: CASE EVENT DATE: 2020
